FAERS Safety Report 6466230-2 (Version None)
Quarter: 2009Q4

REPORT INFORMATION
  Report Type: 
  Country: None (occurrence: None)
  Receive Date: 20091202
  Receipt Date: 20091119
  Transmission Date: 20100525
  Serious: Yes (Other)
  Sender: FDA-Public Use
  Company Number: PHHY2009TR50994

PATIENT
  Age: 16 Year
  Sex: Male

DRUGS (4)
  1. OXCARBAZEPINE [Suspect]
     Indication: EPILEPSY
  2. WARFARIN SODIUM [Interacting]
     Indication: INTERNATIONAL NORMALISED RATIO DECREASED
     Dosage: 10 MG, UNK
  3. WARFARIN SODIUM [Interacting]
     Dosage: 15MG / DAILY
  4. WARFARIN SODIUM [Interacting]
     Dosage: 20MG/DAILY

REACTIONS (2)
  - DRUG INTERACTION [None]
  - INTERNATIONAL NORMALISED RATIO DECREASED [None]
